FAERS Safety Report 6038030-9 (Version None)
Quarter: 2009Q1

REPORT INFORMATION
  Report Type: 
  Country: None (occurrence: None)
  Receive Date: 20090114
  Receipt Date: 20090114
  Transmission Date: 20090719
  Serious: No
  Sender: FDA-Public Use
  Company Number: None

PATIENT
  Age: 70 Year
  Sex: Male
  Weight: 104.3273 kg

DRUGS (1)
  1. LIPITOR [Suspect]
     Indication: BLOOD CHOLESTEROL INCREASED
     Dosage: 1 TAB EVERY OTHER DAY

REACTIONS (4)
  - GAIT DISTURBANCE [None]
  - MUSCLE INJURY [None]
  - MUSCULAR WEAKNESS [None]
  - PAIN IN EXTREMITY [None]
